FAERS Safety Report 16042606 (Version 1)
Quarter: 2019Q1

REPORT INFORMATION
  Report Type: Spontaneous
  Country: DE (occurrence: DE)
  Receive Date: 20190306
  Receipt Date: 20190306
  Transmission Date: 20190418
  Serious: Yes (Other)
  Sender: FDA-Public Use
  Company Number: DE-MYLANLABS-2019M1019893

PATIENT
  Age: 71 Year
  Sex: Female

DRUGS (2)
  1. OMEPRAZOL DURA 10 MG [Suspect]
     Active Substance: OMEPRAZOLE
     Indication: DYSPEPSIA
     Dosage: UNK
  2. OMEPRAZOL DURA 10 MG [Suspect]
     Active Substance: OMEPRAZOLE
     Indication: GASTRIC PH DECREASED

REACTIONS (4)
  - Radius fracture [Unknown]
  - Spinal fracture [Unknown]
  - Ulna fracture [Unknown]
  - Fall [Unknown]
